FAERS Safety Report 13032602 (Version 2)
Quarter: 2017Q1

REPORT INFORMATION
  Report Type: Spontaneous
  Country: US (occurrence: US)
  Receive Date: 20161215
  Receipt Date: 20170202
  Transmission Date: 20170428
  Serious: No
  Sender: FDA-Public Use
  Company Number: US-PFIZER INC-2016581787

PATIENT
  Age: 51 Year
  Sex: Male

DRUGS (1)
  1. KERYDIN [Suspect]
     Active Substance: TAVABOROLE
     Indication: ONYCHOMYCOSIS
     Dosage: 5% SOLUTION, 10ML SIZE, APPLY TO ALL AFFECTED NAILS ONCE DAILY
     Route: 061
     Dates: start: 20160310

REACTIONS (1)
  - Onychomadesis [Unknown]
